FAERS Safety Report 8313258-3 (Version None)
Quarter: 2012Q2

REPORT INFORMATION
  Report Type: 
  Country: None (occurrence: None)
  Receive Date: 20120426
  Receipt Date: 20120417
  Transmission Date: 20120825
  Serious: Yes (Death, Life-Threatening, Hospitalization, Other)
  Sender: FDA-Public Use
  Company Number: AT-ROXANE LABORATORIES, INC.-2012-RO-01079RO

PATIENT
  Age: 72 Year
  Sex: Female

DRUGS (2)
  1. PHENPROCOUMON [Suspect]
     Indication: HYPERCOAGULATION
  2. DEXAMETHASONE [Suspect]
     Indication: CENTRAL NERVOUS SYSTEM LYMPHOMA
     Dosage: 32 MG

REACTIONS (9)
  - SEPSIS [None]
  - STAPHYLOCOCCAL SEPSIS [None]
  - PSEUDOMONAL SEPSIS [None]
  - HAEMATOMA [None]
  - CARDIAC VALVE VEGETATION [None]
  - FALL [None]
  - MULTI-ORGAN FAILURE [None]
  - EXCORIATION [None]
  - ERYSIPELAS [None]
